FAERS Safety Report 15605988 (Version 1)
Quarter: 2018Q4

REPORT INFORMATION
  Report Type: Spontaneous
  Country: DE (occurrence: DE)
  Receive Date: 20181112
  Receipt Date: 20181112
  Transmission Date: 20190205
  Serious: Yes (Other)
  Sender: FDA-Public Use
  Company Number: DE-TEVA-2018-DE-972489

PATIENT
  Age: 68 Year
  Sex: Female

DRUGS (3)
  1. ATORVASTATIN-RATIOPHARM 40 MG FILMTABLETTEN [Suspect]
     Active Substance: ATORVASTATIN CALCIUM
     Dosage: 40 MILLIGRAM DAILY;
     Route: 048
     Dates: start: 2016
  2. HERZASS RATIOPHARM 100 MG [Concomitant]
     Dosage: 100 MILLIGRAM DAILY;
  3. L-THYROXIN 100 MICROGRAM [Concomitant]
     Indication: HYPOTHYROIDISM

REACTIONS (1)
  - Syncope [Unknown]
